FAERS Safety Report 20331015 (Version 2)
Quarter: 2022Q1

REPORT INFORMATION
  Report Type: Report from Study
  Country: CA (occurrence: CA)
  Receive Date: 20220113
  Receipt Date: 20220209
  Transmission Date: 20220423
  Serious: Yes (Other)
  Sender: FDA-Public Use
  Company Number: CA-JNJFOC-20220110853

PATIENT
  Age: 28 Year
  Sex: Female

DRUGS (1)
  1. SIMPONI [Suspect]
     Active Substance: GOLIMUMAB
     Indication: Psoriatic arthropathy
     Route: 058
     Dates: start: 20211206, end: 20220131

REACTIONS (5)
  - Sinus tachycardia [Unknown]
  - Presyncope [Unknown]
  - Injection site mass [Unknown]
  - Hypoacusis [Unknown]
  - Therapy cessation [Unknown]
